FAERS Safety Report 9524448 (Version 4)
Quarter: 2013Q4

REPORT INFORMATION
  Report Type: Spontaneous
  Country: US (occurrence: US)
  Receive Date: 20130916
  Receipt Date: 20131126
  Transmission Date: 20140711
  Serious: Yes (Other)
  Sender: FDA-Public Use
  Company Number: US-PFIZER INC-2013264909

PATIENT
  Age: 58 Year
  Sex: Female
  Weight: 68.03 kg

DRUGS (1)
  1. RELPAX [Suspect]
     Indication: MIGRAINE
     Dosage: 40 MG, EVERY DAY AS NEEDED (18 PILLS A MONTH)
     Route: 048
     Dates: start: 20100525, end: 201309

REACTIONS (4)
  - Bedridden [Unknown]
  - Headache [Not Recovered/Not Resolved]
  - Migraine [Unknown]
  - Stress [Unknown]
